FAERS Safety Report 7188543-1 (Version None)
Quarter: 2010Q4

REPORT INFORMATION
  Report Type: 
  Country: None (occurrence: None)
  Receive Date: 20101222
  Receipt Date: 20100722
  Transmission Date: 20110411
  Serious: No
  Sender: FDA-Public Use
  Company Number: US-AMGEN-KDL426432

PATIENT

DRUGS (1)
  1. ENBREL [Suspect]
     Indication: PSORIATIC ARTHROPATHY
     Dosage: UNK UNK, UNK
     Dates: start: 20021120

REACTIONS (11)
  - ADVERSE REACTION [None]
  - ARTHROPOD BITE [None]
  - EAR INFECTION [None]
  - IMPAIRED HEALING [None]
  - LUNG INFECTION [None]
  - PHARYNGITIS [None]
  - RESPIRATORY TRACT INFECTION [None]
  - RHEUMATOID ARTHRITIS [None]
  - SINUSITIS [None]
  - SKIN IRRITATION [None]
  - SKIN LACERATION [None]
